FAERS Safety Report 7785728-8 (Version None)
Quarter: 2011Q3

REPORT INFORMATION
  Report Type: 
  Country: None (occurrence: None)
  Receive Date: 20110929
  Receipt Date: 20110923
  Transmission Date: 20111222
  Serious: Yes (Death)
  Sender: FDA-Public Use
  Company Number: DE-ASTELLAS-2011EU006251

PATIENT
  Sex: Male
  Weight: 90 kg

DRUGS (5)
  1. DOBUTAMIN [Concomitant]
     Dosage: UNK
     Route: 065
     Dates: start: 20110427, end: 20110429
  2. DIGITOXIN TAB [Concomitant]
     Dosage: UNK
     Route: 065
     Dates: start: 20110427, end: 20110429
  3. MICAFUNGIN INJECTION [Suspect]
     Indication: SEPTIC SHOCK
     Dosage: 100 MG, UNKNOWN/D
     Route: 042
     Dates: start: 20110427
  4. ENOXAPARIN SODIUM [Concomitant]
     Dosage: UNK
     Route: 065
     Dates: start: 20110427, end: 20110429
  5. PLAVIX [Concomitant]
     Dosage: UNK
     Route: 065
     Dates: start: 20110427, end: 20110429

REACTIONS (1)
  - ACIDOSIS [None]
